FAERS Safety Report 21920773 (Version 2)
Quarter: 2023Q1

REPORT INFORMATION
  Report Type: Spontaneous
  Country: DE (occurrence: DE)
  Receive Date: 20230127
  Receipt Date: 20230310
  Transmission Date: 20230417
  Serious: Yes (Hospitalization, Other)
  Sender: FDA-Public Use
  Company Number: DE-BAYER-2023A004695

PATIENT
  Age: 71 Year
  Sex: Female

DRUGS (5)
  1. RIVAROXABAN [Suspect]
     Active Substance: RIVAROXABAN
     Indication: Thrombosis prophylaxis
     Dosage: 20 MG, QD
     Route: 048
     Dates: end: 20230123
  2. RIVAROXABAN [Suspect]
     Active Substance: RIVAROXABAN
     Dosage: 15 MG, BID
     Route: 048
     Dates: start: 20221020
  3. IBUPROFEN [Concomitant]
     Active Substance: IBUPROFEN
  4. ACETAMINOPHEN [Concomitant]
     Active Substance: ACETAMINOPHEN
  5. TILIDINE [Concomitant]
     Active Substance: TILIDINE

REACTIONS (7)
  - Pulmonary embolism [Recovered/Resolved]
  - Knee arthroplasty [Unknown]
  - Depression [Unknown]
  - Apathy [Unknown]
  - Weight decreased [Unknown]
  - Decreased appetite [Unknown]
  - Listless [Unknown]

NARRATIVE: CASE EVENT DATE: 20221101
